FAERS Safety Report 22153084 (Version 2)
Quarter: 2023Q2

REPORT INFORMATION
  Report Type: Report from Study
  Country: TR (occurrence: TR)
  Receive Date: 20230329
  Receipt Date: 20230405
  Transmission Date: 20230722
  Serious: Yes (Other)
  Sender: FDA-Public Use
  Company Number: TR-GILEAD-2023-0621962

PATIENT

DRUGS (1)
  1. REMDESIVIR [Suspect]
     Active Substance: REMDESIVIR
     Indication: COVID-19
     Route: 064

REACTIONS (2)
  - Small for dates baby [Unknown]
  - Foetal exposure during pregnancy [Recovered/Resolved]
